FAERS Safety Report 19885546 (Version 2)
Quarter: 2022Q1

REPORT INFORMATION
  Report Type: Report from Study
  Country: HR (occurrence: HR)
  Receive Date: 20210927
  Receipt Date: 20220118
  Transmission Date: 20220423
  Serious: Yes (Hospitalization)
  Sender: FDA-Public Use
  Company Number: HR-CELGENE-HRV-20210903957

PATIENT
  Age: 47 Year
  Sex: Male
  Weight: 66 kg

DRUGS (2)
  1. OZANIMOD [Suspect]
     Active Substance: OZANIMOD
     Indication: Crohn^s disease
     Dosage: .92 MILLIGRAM
     Route: 048
     Dates: end: 20210913
  2. PREDNISONE [Concomitant]
     Active Substance: PREDNISONE
     Indication: Crohn^s disease
     Dosage: 5 MILLIGRAM
     Route: 048

REACTIONS (1)
  - Abdominal wall abscess [Recovered/Resolved]

NARRATIVE: CASE EVENT DATE: 20210914
